FAERS Safety Report 8875083 (Version 1)
Quarter: 2012Q4

REPORT INFORMATION
  Report Type: 
  Country: US (occurrence: US)
  Receive Date: 20121029
  Receipt Date: 20121029
  Transmission Date: 20130627
  Serious: No
  Sender: FDA-Public Use
  Company Number: US-PFIZER INC-2012265051

PATIENT
  Age: 48 Year
  Sex: Female

DRUGS (10)
  1. NEURONTIN [Suspect]
     Dosage: UNK
  2. LISINOPRIL [Suspect]
     Dosage: UNK
  3. NORVASC [Suspect]
     Dosage: UNK
  4. METOPROLOL TARTRATE [Suspect]
     Dosage: UNK
  5. HYDROCHLOROTHIAZIDE [Suspect]
     Dosage: UNK
  6. ASA [Suspect]
     Dosage: UNK
  7. CASTOR OIL [Suspect]
     Dosage: UNK
  8. REGLAN [Suspect]
     Dosage: UNK
  9. CODEINE [Suspect]
     Dosage: UNK
  10. COREG [Suspect]
     Dosage: UNK

REACTIONS (1)
  - Drug hypersensitivity [Unknown]
